FAERS Safety Report 13136379 (Version 1)
Quarter: 2017Q1

REPORT INFORMATION
  Report Type: Spontaneous
  Country: CA (occurrence: CA)
  Receive Date: 20170122
  Receipt Date: 20170122
  Transmission Date: 20170428
  Serious: Yes (Hospitalization, Other)
  Sender: FDA-Public Use
  Company Number: CA-009507513-1701CAN008852

PATIENT
  Sex: Female
  Weight: 81 kg

DRUGS (15)
  1. AVENTYL [Concomitant]
  2. CELEXA [Concomitant]
     Active Substance: CITALOPRAM HYDROBROMIDE
     Dosage: 20 MG, UNK
  3. ADALAT CC [Concomitant]
     Active Substance: NIFEDIPINE
     Dosage: EXTENDED RELEASE
  4. LASIX [Concomitant]
     Active Substance: FUROSEMIDE
  5. FOSAMAX [Suspect]
     Active Substance: ALENDRONATE SODIUM
     Indication: OSTEOPOROSIS
     Dosage: 70 MG, Q1W (EVERY ONE WEEK)
     Route: 048
  6. ALTACE [Concomitant]
     Active Substance: RAMIPRIL
  7. ASPIRIN. [Concomitant]
     Active Substance: ASPIRIN
  8. DEXILANT [Concomitant]
     Active Substance: DEXLANSOPRAZOLE
     Dosage: DELAYED RELEASE
  9. LORAZEPAM. [Concomitant]
     Active Substance: LORAZEPAM
  10. TOVIAZ [Concomitant]
     Active Substance: FESOTERODINE FUMARATE
     Dosage: EXTENDED RELEASE
  11. CARBOCAL [Concomitant]
     Active Substance: CALCIUM CARBONATE
  12. SYNTHROID [Concomitant]
     Active Substance: LEVOTHYROXINE SODIUM
  13. CRESTOR [Concomitant]
     Active Substance: ROSUVASTATIN CALCIUM
     Dosage: 20 MG, UNK
  14. EFFEXOR [Concomitant]
     Active Substance: VENLAFAXINE HYDROCHLORIDE
     Dosage: EXTENDED RELEASE
  15. LIPIDIL SUPRA [Concomitant]
     Dosage: 160 MG, UNK

REACTIONS (2)
  - Intramedullary rod insertion [Unknown]
  - Atypical femur fracture [Unknown]
